FAERS Safety Report 8108629-4 (Version None)
Quarter: 2012Q1

REPORT INFORMATION
  Report Type: 
  Country: None (occurrence: None)
  Receive Date: 20120202
  Receipt Date: 20120116
  Transmission Date: 20120608
  Serious: No
  Sender: FDA-Public Use
  Company Number: US-AMGEN-USASP2012003014

PATIENT
  Age: 68 Year
  Sex: Female

DRUGS (1)
  1. ENBREL [Suspect]
     Indication: RHEUMATOID ARTHRITIS
     Dosage: 50 MG, QWK
     Dates: start: 20060801, end: 20120107

REACTIONS (5)
  - INFLAMMATION [None]
  - SKIN HYPERPIGMENTATION [None]
  - DRY SKIN [None]
  - MOLE EXCISION [None]
  - PRURITUS [None]
